FAERS Safety Report 5565813-1 (Version None)
Quarter: 2007Q4

REPORT INFORMATION
  Report Type: 
  Country: None (occurrence: None)
  Receive Date: 20071213
  Receipt Date: 20071128
  Transmission Date: 20080405
  Serious: Yes (Other)
  Sender: FDA-Public Use
  Company Number: 2007CL001210

PATIENT
  Age: 29 Year
  Sex: Female
  Weight: 107.5025 kg

DRUGS (24)
  1. SYMLIN [Suspect]
     Indication: TYPE 1 DIABETES MELLITUS
     Dosage: 81 MCG; TID; SC; 60 MCG; TID; SC; 15 MCG; TID; SC
     Route: 058
     Dates: start: 20070101, end: 20070101
  2. SYMLIN [Suspect]
     Indication: TYPE 1 DIABETES MELLITUS
     Dosage: 81 MCG; TID; SC; 60 MCG; TID; SC; 15 MCG; TID; SC
     Route: 058
     Dates: start: 20070810, end: 20070101
  3. SYMLIN [Suspect]
     Indication: TYPE 1 DIABETES MELLITUS
     Dosage: 81 MCG; TID; SC; 60 MCG; TID; SC; 15 MCG; TID; SC
     Route: 058
     Dates: start: 20070101, end: 20071023
  4. APIDRA [Suspect]
     Indication: TYPE 1 DIABETES MELLITUS
     Dosage: PRN; SC
     Route: 058
  5. ESCITALOPRAM [Concomitant]
  6. PROPRANOLOL [Concomitant]
  7. SIMVASTATIN [Concomitant]
  8. LEVOTHYROXINE SODIUM [Concomitant]
  9. TRIAMCINOLONE [Concomitant]
  10. NORETHINDRONE [Concomitant]
  11. AVAPRO [Concomitant]
  12. MONTELUKAST SODIUM [Concomitant]
  13. ALBUTEROL SULFATE [Concomitant]
  14. ADVAIR DISKUS 100/50 [Concomitant]
  15. ACETAMINOPHEN [Concomitant]
  16. MIDOL [Concomitant]
  17. ALLEGRA [Concomitant]
  18. ATIVAN [Concomitant]
  19. WELLBUTRIN [Concomitant]
  20. ARIPIPRAZOLE [Concomitant]
  21. BUDESONIDE [Concomitant]
  22. MOMETASONE FUROATE [Concomitant]
  23. FERROUS SULFATE TAB [Concomitant]
  24. PENTIAZ [Concomitant]

REACTIONS (6)
  - BLOOD GLUCOSE FLUCTUATION [None]
  - HYPOGLYCAEMIA [None]
  - LOSS OF CONSCIOUSNESS [None]
  - MEMORY IMPAIRMENT [None]
  - ROAD TRAFFIC ACCIDENT [None]
  - TREATMENT NONCOMPLIANCE [None]
